FAERS Safety Report 13981029 (Version 1)
Quarter: 2017Q3

REPORT INFORMATION
  Report Type: Spontaneous
  Country: US (occurrence: US)
  Receive Date: 20170918
  Receipt Date: 20170918
  Transmission Date: 20171128
  Serious: No
  Sender: FDA-Public Use
  Company Number: US-TEVA-793789ACC

PATIENT
  Age: 80 Year
  Sex: Female
  Weight: 60.77 kg

DRUGS (5)
  1. FLUTICASONE PROPRIONATE [Concomitant]
     Active Substance: FLUTICASONE PROPIONATE
     Dates: start: 201706
  2. FEXOFENADINE [Suspect]
     Active Substance: FEXOFENADINE\FEXOFENADINE HYDROCHLORIDE
     Indication: PRODUCTIVE COUGH
  3. FEXOFENADINE [Suspect]
     Active Substance: FEXOFENADINE\FEXOFENADINE HYDROCHLORIDE
     Indication: HYPERSENSITIVITY
     Dosage: 180 MILLIGRAM DAILY;
     Route: 048
     Dates: start: 201706
  4. ATENOLOL. [Concomitant]
     Active Substance: ATENOLOL
     Dates: start: 201706
  5. LOVASTATIN. [Concomitant]
     Active Substance: LOVASTATIN
     Dates: start: 201702

REACTIONS (4)
  - Pruritus generalised [Recovering/Resolving]
  - Off label use [Unknown]
  - Drug administered to patient of inappropriate age [Unknown]
  - Therapeutic response unexpected [Unknown]

NARRATIVE: CASE EVENT DATE: 201706
